FAERS Safety Report 4627896-2 (Version None)
Quarter: 2005Q2

REPORT INFORMATION
  Report Type: 
  Country: None (occurrence: None)
  Receive Date: 20050404
  Receipt Date: 20050404
  Transmission Date: 20051028
  Serious: Yes (Hospitalization)
  Sender: FDA-Public Use
  Company Number: None

PATIENT
  Sex: Female

DRUGS (6)
  1. XELODA [Suspect]
     Indication: COLON CANCER
     Dosage: 1000MG/M2 BIDX14DQ 3 WKS ORAL
     Route: 048
     Dates: start: 20050223, end: 20050323
  2. OXALIPLATIN SANOFI [Suspect]
     Indication: COLON CANCER
     Dosage: 130MG/M2 Q'3WKS INTRAVENOUS
     Route: 042
     Dates: start: 20050223, end: 20050316
  3. NPH INSULIN [Concomitant]
  4. REGULAR INSULIN [Concomitant]
  5. MORPHINE [Concomitant]
  6. KYTRIL [Concomitant]

REACTIONS (4)
  - ABDOMINAL PAIN [None]
  - DEHYDRATION [None]
  - NAUSEA [None]
  - VOMITING [None]
